FAERS Safety Report 7713369-7 (Version None)
Quarter: 2011Q3

REPORT INFORMATION
  Report Type: 
  Country: None (occurrence: None)
  Receive Date: 20110826
  Receipt Date: 20110818
  Transmission Date: 20111222
  Serious: Yes (Hospitalization, Other)
  Sender: FDA-Public Use
  Company Number: US-BAYER-2011-023845

PATIENT
  Age: 29 Year
  Sex: Female

DRUGS (17)
  1. PROCTOFOAM [PRAMOCAINE HYDROCHLORIDE] [Concomitant]
     Route: 061
  2. ASCORBIC ACID [Concomitant]
  3. YAZ [Suspect]
     Indication: PRODUCT USED FOR UNKNOWN INDICATION
  4. DROSPIRENONE AND ETHINYL ESTRADIOL [Suspect]
     Indication: PRODUCT USED FOR UNKNOWN INDICATION
  5. DARVOCET [Concomitant]
     Route: 048
  6. KETOCONAZOLE [Concomitant]
     Dosage: 2 UNK, UNK
     Route: 061
  7. IBUPROFEN [Concomitant]
     Dosage: 800 MG, UNK
     Route: 048
  8. CAMILA [Concomitant]
     Dosage: .35 MG, UNK
     Route: 048
  9. PRENATAL VITAMINS [Concomitant]
  10. ADVIL LIQUI-GELS [Concomitant]
  11. CYCLESSA [Concomitant]
  12. YASMIN [Suspect]
     Indication: PRODUCT USED FOR UNKNOWN INDICATION
  13. CEPHALEXIN [Concomitant]
     Dosage: 250 MG, UNK
     Route: 048
  14. AZITHROMYCIN [Concomitant]
     Dosage: 250 MG, UNK
     Route: 048
  15. DOCUSATE [Concomitant]
     Dosage: 100 MG, UNK
     Route: 048
  16. NASACORT [Concomitant]
     Dosage: 55 UNK, UNK
  17. AMOXICILLIN [Concomitant]
     Dosage: 500 MG, UNK
     Route: 048

REACTIONS (8)
  - CHOLECYSTITIS CHRONIC [None]
  - GALLBLADDER DISORDER [None]
  - NAUSEA [None]
  - BILIARY DYSKINESIA [None]
  - VOMITING [None]
  - MALAISE [None]
  - DIARRHOEA [None]
  - INSOMNIA [None]
